FAERS Safety Report 6694915-1 (Version None)
Quarter: 2010Q2

REPORT INFORMATION
  Report Type: 
  Country: None (occurrence: None)
  Receive Date: 20100423
  Receipt Date: 20091016
  Transmission Date: 20101027
  Serious: Yes (Other)
  Sender: FDA-Public Use
  Company Number: US-BAYER-200923999NA

PATIENT
  Age: 27 Year
  Sex: Female
  Weight: 78 kg

DRUGS (3)
  1. MIRENA [Suspect]
     Indication: CONTRACEPTION
     Route: 015
     Dates: start: 20090330, end: 20090410
  2. MIRENA [Suspect]
     Dosage: USED IN THE PAST PRIOR TO PREGNANCY WITHOUT ANY PROBLEMS
     Route: 015
     Dates: start: 20040801, end: 20071001
  3. ALBUTEROL [Concomitant]
     Indication: ASTHMA

REACTIONS (8)
  - BALANCE DISORDER [None]
  - CERVICAL DYSPLASIA [None]
  - CHEST PAIN [None]
  - DIZZINESS [None]
  - MIGRAINE WITH AURA [None]
  - PAPILLOMA VIRAL INFECTION [None]
  - UNEVALUABLE EVENT [None]
  - VAGINAL HAEMORRHAGE [None]
